FAERS Safety Report 19154644 (Version 2)
Quarter: 2021Q2

REPORT INFORMATION
  Report Type: Other
  Country: None (occurrence: US)
  Receive Date: 20210419
  Receipt Date: 20210601
  Transmission Date: 20210717
  Serious: No
  Sender: FDA-Public Use
  Company Number: US-RC OUTSOURCING, LLC-2109477

PATIENT
  Age: 70 Year
  Sex: Female

DRUGS (1)
  1. BEVACIZUMAB 2.5 MG/0.1 ML [Suspect]
     Active Substance: BEVACIZUMAB
     Route: 031

REACTIONS (2)
  - Pain [None]
  - Hypersensitivity [None]

NARRATIVE: CASE EVENT DATE: 20210402
